FAERS Safety Report 13001232 (Version 1)
Quarter: 2016Q4

REPORT INFORMATION
  Report Type: Spontaneous
  Country: US (occurrence: US)
  Receive Date: 20161206
  Receipt Date: 20161206
  Transmission Date: 20170207
  Serious: No
  Sender: FDA-Public Use
  Company Number: US-PFIZER INC-2016554947

PATIENT
  Age: 56 Year
  Sex: Female

DRUGS (3)
  1. PRIMIDONE. [Interacting]
     Active Substance: PRIMIDONE
     Dosage: UNK
  2. ESTROGENS CONJUGATED [Interacting]
     Active Substance: ESTROGENS, CONJUGATED
     Dosage: UNK
  3. LEVOTHYROXINE SODIUM. [Suspect]
     Active Substance: LEVOTHYROXINE SODIUM
     Dosage: UNK

REACTIONS (1)
  - Drug interaction [Unknown]
